FAERS Safety Report 10467069 (Version 1)
Quarter: 2014Q3

REPORT INFORMATION
  Report Type: Spontaneous
  Country: US (occurrence: US)
  Receive Date: 20140922
  Receipt Date: 20140922
  Transmission Date: 20150326
  Serious: Yes (Other)
  Sender: FDA-Public Use
  Company Number: US-PFIZER INC-2014256407

PATIENT
  Sex: Female

DRUGS (1)
  1. PREPARATION H COOLING GEL [Suspect]
     Active Substance: PHENYLEPHRINE HYDROCHLORIDE\WITCH HAZEL
     Dosage: UNK
     Route: 054

REACTIONS (2)
  - Incorrect route of drug administration [Unknown]
  - Rectal haemorrhage [Unknown]
